FAERS Safety Report 12352589 (Version 3)
Quarter: 2016Q3

REPORT INFORMATION
  Report Type: Spontaneous
  Country: US (occurrence: US)
  Receive Date: 20160510
  Receipt Date: 20160707
  Transmission Date: 20161109
  Serious: Yes (Other)
  Sender: FDA-Public Use
  Company Number: US-BAYER-2016-089638

PATIENT
  Age: 30 Year
  Sex: Female
  Weight: 115.65 kg

DRUGS (1)
  1. MIRENA [Suspect]
     Active Substance: LEVONORGESTREL
     Indication: CONTRACEPTION
     Dosage: 20 MCG/24HR, CONT
     Route: 015
     Dates: start: 20120724, end: 20160422

REACTIONS (2)
  - Complication of device removal [Recovered/Resolved]
  - Embedded device [Recovered/Resolved]
